FAERS Safety Report 10746694 (Version 2)
Quarter: 2015Q1

REPORT INFORMATION
  Report Type: Spontaneous
  Country: US (occurrence: US)
  Receive Date: 20150128
  Receipt Date: 20150210
  Transmission Date: 20150721
  Serious: Yes (Other)
  Sender: FDA-Public Use
  Company Number: US-ABBVIE-15K-163-1335968-00

PATIENT
  Sex: Male
  Weight: 73.09 kg

DRUGS (3)
  1. HUMIRA [Suspect]
     Active Substance: ADALIMUMAB
     Indication: COLITIS ULCERATIVE
     Route: 058
     Dates: start: 201403, end: 201411
  2. PREDNISONE. [Concomitant]
     Active Substance: PREDNISONE
     Indication: COLITIS
  3. OMEPRAZOLE. [Concomitant]
     Active Substance: OMEPRAZOLE
     Indication: GASTROOESOPHAGEAL REFLUX DISEASE

REACTIONS (5)
  - Skin exfoliation [Unknown]
  - Eye oedema [Unknown]
  - Conjunctival haemorrhage [Unknown]
  - Colitis [Not Recovered/Not Resolved]
  - Pseudopolyposis [Not Recovered/Not Resolved]

NARRATIVE: CASE EVENT DATE: 2014
